FAERS Safety Report 19786830 (Version 1)
Quarter: 2021Q3

REPORT INFORMATION
  Report Type: Spontaneous
  Country: PL (occurrence: PL)
  Receive Date: 20210903
  Receipt Date: 20210903
  Transmission Date: 20211014
  Serious: Yes (Hospitalization)
  Sender: FDA-Public Use
  Company Number: PL-MYLANLABS-2021M1057610

PATIENT
  Age: 27 Year
  Sex: Male
  Weight: 64.95 kg

DRUGS (5)
  1. TORASEMIDE [Suspect]
     Active Substance: TORSEMIDE
     Indication: PRODUCT USED FOR UNKNOWN INDICATION
     Dosage: 1 DOSAGE FORM, QD (IN THE MORNING)
     Route: 065
  2. METOPROLOL. [Suspect]
     Active Substance: METOPROLOL
     Indication: PRODUCT USED FOR UNKNOWN INDICATION
     Dosage: 100 MILLIGRAM (1 AND A HALF TABLET IN THE MORNING)
     Route: 065
  3. SACUBITRIL W/VALSARTAN [Suspect]
     Active Substance: SACUBITRIL\VALSARTAN
     Indication: PRODUCT USED FOR UNKNOWN INDICATION
     Dosage: 1 DOSAGE FORM, QD (IN THE MORNING)
     Route: 065
  4. EPLERENONE. [Suspect]
     Active Substance: EPLERENONE
     Indication: PRODUCT USED FOR UNKNOWN INDICATION
     Dosage: 1 DOSAGE FORM, QD (AT NOON)
     Route: 065
  5. METOPROLOL. [Suspect]
     Active Substance: METOPROLOL
     Dosage: 2 DOSAGE FORM, QD
     Route: 065

REACTIONS (4)
  - Pneumonia [Unknown]
  - Cardiac failure [Unknown]
  - Drug ineffective [Unknown]
  - Hypokinesia [Unknown]
